FAERS Safety Report 4657944-5 (Version None)
Quarter: 2005Q2

REPORT INFORMATION
  Report Type: 
  Country: None (occurrence: None)
  Receive Date: 20050510
  Receipt Date: 20021112
  Transmission Date: 20051028
  Serious: Yes (Life-Threatening, Other)
  Sender: FDA-Public Use
  Company Number: 2002GB02677

PATIENT
  Age: 25080 Day
  Sex: Male
  Weight: 76.4 kg

DRUGS (3)
  1. LISINOPRIL [Suspect]
     Indication: ESSENTIAL HYPERTENSION
     Dosage: HIGH DOSE
     Route: 048
     Dates: start: 20010914
  2. GOLD INJECTIONS [Suspect]
     Dosage: STARTED SINCE THE 1980S (EIGHTIES)
  3. INDOCID RETARD [Concomitant]
     Indication: RHEUMATOID ARTHRITIS
     Dosage: STARTED SOME YEARS AGO
     Route: 048

REACTIONS (8)
  - AMNESIA [None]
  - BRAIN DAMAGE [None]
  - CEREBRAL INFARCTION [None]
  - CIRCULATORY COLLAPSE [None]
  - DIZZINESS [None]
  - HYPERTENSION [None]
  - HYPOTENSION [None]
  - INJURY [None]
